FAERS Safety Report 9237976 (Version 2)
Quarter: 2013Q2

REPORT INFORMATION
  Report Type: Spontaneous
  Country: DE (occurrence: DE)
  Receive Date: 20130418
  Receipt Date: 20130426
  Transmission Date: 20140414
  Serious: Yes (Other)
  Sender: FDA-Public Use
  Company Number: DE-JNJFOC-20130407159

PATIENT
  Age: 57 Year
  Sex: Male
  Weight: 84 kg

DRUGS (11)
  1. XARELTO [Suspect]
     Indication: EMBOLISM VENOUS
     Route: 048
  2. XARELTO [Suspect]
     Indication: EMBOLISM VENOUS
     Route: 048
  3. XARELTO [Suspect]
     Indication: THROMBOSIS
     Route: 048
  4. XARELTO [Suspect]
     Indication: THROMBOSIS
     Route: 048
  5. XARELTO [Suspect]
     Indication: THROMBOSIS PROPHYLAXIS
     Route: 048
  6. XARELTO [Suspect]
     Indication: THROMBOSIS PROPHYLAXIS
     Route: 048
  7. XARELTO [Suspect]
     Indication: KNEE ARTHROPLASTY
     Route: 048
  8. XARELTO [Suspect]
     Indication: KNEE ARTHROPLASTY
     Route: 048
  9. CYMBALTA [Concomitant]
     Route: 065
  10. PANTAZOL [Concomitant]
     Route: 065
  11. VOLTAREN RESINAT [Concomitant]
     Route: 065

REACTIONS (3)
  - Thrombosis [Unknown]
  - Platelet count increased [Unknown]
  - Drug ineffective [Unknown]
